FAERS Safety Report 23824683 (Version 1)
Quarter: 2024Q2

REPORT INFORMATION
  Report Type: Spontaneous
  Country: GB (occurrence: GB)
  Receive Date: 20240507
  Receipt Date: 20240507
  Transmission Date: 20240716
  Serious: Yes (Hospitalization, Disabling, Other)
  Sender: FDA-Public Use
  Company Number: GB-IPSEN Group, Research and Development-2024-06062

PATIENT
  Age: 58 Year
  Sex: Female
  Weight: 115 kg

DRUGS (2)
  1. CABOMETYX [Suspect]
     Active Substance: CABOZANTINIB S-MALATE
     Indication: Clear cell carcinoma of cervix
     Dosage: 60 MG, QD (2 CYCLES/ 60 MG)
     Route: 048
     Dates: start: 20240223
  2. CABOMETYX [Suspect]
     Active Substance: CABOZANTINIB S-MALATE
     Indication: Off label use
     Dosage: 40 MG, QD
     Route: 048
     Dates: start: 20240419

REACTIONS (4)
  - Lower respiratory tract infection [Recovered/Resolved]
  - Hypothyroidism [Unknown]
  - Fatigue [Recovered/Resolved]
  - Off label use [Unknown]
